FAERS Safety Report 18274353 (Version 1)
Quarter: 2020Q3

REPORT INFORMATION
  Report Type: Report from Study
  Country: US (occurrence: US)
  Receive Date: 20200916
  Receipt Date: 20200916
  Transmission Date: 20201103
  Serious: Yes (Other)
  Sender: FDA-Public Use
  Company Number: US-JNJFOC-20200912815

PATIENT
  Age: 66 Year
  Sex: Female

DRUGS (3)
  1. SPRAVATO [Suspect]
     Active Substance: ESKETAMINE
     Dosage: 84 MG, 1 DOSE TOTAL
     Dates: start: 20200831, end: 20200831
  2. SPRAVATO [Suspect]
     Active Substance: ESKETAMINE
     Indication: DEPRESSION
     Dosage: 56 MG, TOTAL 2 DOSES
     Dates: start: 20200824, end: 20200827
  3. SPRAVATO [Suspect]
     Active Substance: ESKETAMINE
     Dates: start: 20200903, end: 20200903

REACTIONS (3)
  - Sedation [Recovered/Resolved]
  - Dissociation [Recovered/Resolved]
  - Nausea [Recovered/Resolved]

NARRATIVE: CASE EVENT DATE: 20200903
